FAERS Safety Report 6094904-4 (Version None)
Quarter: 2009Q1

REPORT INFORMATION
  Report Type: 
  Country: None (occurrence: None)
  Receive Date: 20090227
  Receipt Date: 20090225
  Transmission Date: 20090719
  Serious: Yes (Life-Threatening)
  Sender: FDA-Public Use
  Company Number: US-ASTRAZENECA-2009UW05258

PATIENT
  Age: 61 Year
  Sex: Female

DRUGS (10)
  1. SEROQUEL [Suspect]
     Route: 048
  2. CYMBALTA [Suspect]
  3. BENAZEPRIL HYDROCHLORIDE [Concomitant]
     Dosage: 20/25 DAILY
  4. VERAPAMIL [Concomitant]
  5. NEXIUM [Concomitant]
     Route: 048
  6. ADVAIR HFA [Concomitant]
     Dosage: 250/50
  7. ALBUTEROL [Concomitant]
     Dosage: PRN
  8. CELEBREX [Concomitant]
     Dosage: 200
  9. ALLOPURINOL [Concomitant]
  10. FISH OIL [Concomitant]

REACTIONS (1)
  - TOXIC ENCEPHALOPATHY [None]
